FAERS Safety Report 25358316 (Version 1)
Quarter: 2025Q2

REPORT INFORMATION
  Report Type: Spontaneous
  Country: CN (occurrence: CN)
  Receive Date: 20250526
  Receipt Date: 20250526
  Transmission Date: 20250716
  Serious: Yes (Life-Threatening, Hospitalization, Other)
  Sender: UNICHEM
  Company Number: CN-UNICHEM LABORATORIES LIMITED-UNI-2025-CN-002295

PATIENT

DRUGS (2)
  1. QUETIAPINE [Suspect]
     Active Substance: QUETIAPINE
     Indication: Depression
     Route: 048
     Dates: start: 20230329
  2. QUETIAPINE [Suspect]
     Active Substance: QUETIAPINE
     Indication: Claustrophobia

REACTIONS (8)
  - Toxicity to various agents [Recovered/Resolved]
  - Coma [Unknown]
  - Intentional overdose [Unknown]
  - Acute kidney injury [Recovered/Resolved]
  - Neuropathy peripheral [Recovered/Resolved]
  - Rhabdomyolysis [Recovered/Resolved]
  - Tachycardia [Recovered/Resolved]
  - Long QT syndrome [Recovered/Resolved]
